FAERS Safety Report 15739486 (Version 1)
Quarter: 2018Q4

REPORT INFORMATION
  Report Type: Spontaneous
  Country: US (occurrence: US)
  Receive Date: 20181219
  Receipt Date: 20181219
  Transmission Date: 20190205
  Serious: No
  Sender: FDA-Public Use
  Company Number: US-ALLERGAN-1830279US

PATIENT
  Sex: Female

DRUGS (1)
  1. BYSTOLIC [Suspect]
     Active Substance: NEBIVOLOL HYDROCHLORIDE
     Indication: HYPERTENSION
     Dosage: 5 MG, UNK
     Route: 065

REACTIONS (7)
  - Cough [Unknown]
  - Tongue discomfort [Unknown]
  - Blood pressure abnormal [Unknown]
  - Pruritus [Unknown]
  - Throat irritation [Unknown]
  - Dysphonia [Unknown]
  - Tongue blistering [Unknown]
